FAERS Safety Report 11657426 (Version 3)
Quarter: 2016Q1

REPORT INFORMATION
  Report Type: Spontaneous
  Country: AT (occurrence: AT)
  Receive Date: 20151023
  Receipt Date: 20160108
  Transmission Date: 20160525
  Serious: Yes (Other)
  Sender: FDA-Public Use
  Company Number: AT-ABBVIE-15P-009-1486822-00

PATIENT
  Age: 22 Year
  Sex: Male

DRUGS (29)
  1. LEPONEX [Suspect]
     Active Substance: CLOZAPINE
     Route: 048
     Dates: start: 20150507, end: 20150518
  2. LEPONEX [Suspect]
     Active Substance: CLOZAPINE
     Route: 048
     Dates: start: 20150731, end: 20150804
  3. DEPAKENE [Suspect]
     Active Substance: VALPROIC ACID
     Route: 048
     Dates: start: 20150610, end: 20150701
  4. LEPONEX [Suspect]
     Active Substance: CLOZAPINE
     Route: 048
     Dates: start: 20150519, end: 20150525
  5. LEPONEX [Suspect]
     Active Substance: CLOZAPINE
     Route: 048
     Dates: start: 20150526, end: 20150531
  6. LEPONEX [Suspect]
     Active Substance: CLOZAPINE
     Route: 048
     Dates: start: 20150609, end: 20150610
  7. LEPONEX [Suspect]
     Active Substance: CLOZAPINE
     Route: 048
     Dates: start: 20150630, end: 20150714
  8. LEPONEX [Suspect]
     Active Substance: CLOZAPINE
     Route: 048
     Dates: start: 20150715, end: 20150730
  9. LEPONEX [Suspect]
     Active Substance: CLOZAPINE
     Route: 048
     Dates: start: 20150806
  10. RIVOTRIL [Concomitant]
     Active Substance: CLONAZEPAM
     Indication: PRODUCT USED FOR UNKNOWN INDICATION
     Dates: start: 20150518
  11. DEPAKENE [Suspect]
     Active Substance: VALPROIC ACID
     Indication: PRODUCT USED FOR UNKNOWN INDICATION
     Route: 048
     Dates: start: 20150413, end: 20150421
  12. DEPAKENE [Suspect]
     Active Substance: VALPROIC ACID
     Route: 048
     Dates: start: 20150711
  13. LEPONEX [Suspect]
     Active Substance: CLOZAPINE
     Route: 048
     Dates: start: 20150805, end: 20150805
  14. DYSURGAL [Concomitant]
     Indication: PRODUCT USED FOR UNKNOWN INDICATION
     Dates: start: 20150420, end: 20150605
  15. TEMESTA [Concomitant]
     Active Substance: LORAZEPAM
     Indication: PRODUCT USED FOR UNKNOWN INDICATION
     Dates: start: 20150411, end: 20150518
  16. LEPONEX [Suspect]
     Active Substance: CLOZAPINE
     Route: 048
     Dates: start: 20150430, end: 20150506
  17. SOLIAN [Suspect]
     Active Substance: AMISULPRIDE
     Route: 048
     Dates: start: 20150601
  18. LEPONEX [Suspect]
     Active Substance: CLOZAPINE
     Indication: PRODUCT USED FOR UNKNOWN INDICATION
     Route: 048
     Dates: start: 20150414, end: 20150422
  19. LEPONEX [Suspect]
     Active Substance: CLOZAPINE
     Route: 048
     Dates: start: 20150423, end: 20150529
  20. BISOPROLOL [Concomitant]
     Active Substance: BISOPROLOL
     Indication: PRODUCT USED FOR UNKNOWN INDICATION
     Dates: start: 20150418
  21. HALDOL [Concomitant]
     Active Substance: HALOPERIDOL
     Indication: PRODUCT USED FOR UNKNOWN INDICATION
     Dates: start: 20150519, end: 20150528
  22. DEPAKENE [Suspect]
     Active Substance: VALPROIC ACID
     Route: 048
     Dates: start: 20150430, end: 20150609
  23. SOLIAN [Suspect]
     Active Substance: AMISULPRIDE
     Indication: PRODUCT USED FOR UNKNOWN INDICATION
     Route: 048
     Dates: start: 20150529, end: 20150529
  24. LEPONEX [Suspect]
     Active Substance: CLOZAPINE
     Route: 048
     Dates: start: 20150601, end: 20150608
  25. TRUXAL [Concomitant]
     Active Substance: CHLORPROTHIXENE
     Indication: PRODUCT USED FOR UNKNOWN INDICATION
     Dates: start: 20150424, end: 20150424
  26. SOLIAN [Suspect]
     Active Substance: AMISULPRIDE
     Route: 048
     Dates: start: 20150530, end: 20150531
  27. LEPONEX [Suspect]
     Active Substance: CLOZAPINE
     Route: 048
     Dates: start: 20150611, end: 20150629
  28. DEPAKENE [Suspect]
     Active Substance: VALPROIC ACID
     Route: 048
     Dates: start: 20150422, end: 20150430
  29. DEPAKENE [Suspect]
     Active Substance: VALPROIC ACID
     Route: 048
     Dates: start: 20150702, end: 20150711

REACTIONS (2)
  - Salivary hypersecretion [Recovered/Resolved]
  - Sedation [Recovered/Resolved]

NARRATIVE: CASE EVENT DATE: 20150618
